FAERS Safety Report 15372953 (Version 2)
Quarter: 2018Q4

REPORT INFORMATION
  Report Type: Spontaneous
  Country: US (occurrence: US)
  Receive Date: 20180912
  Receipt Date: 20181113
  Transmission Date: 20190204
  Serious: Yes (Hospitalization, Other)
  Sender: FDA-Public Use
  Company Number: US-009507513-1809USA002770

PATIENT
  Age: 75 Year
  Sex: Male
  Weight: 116.3 kg

DRUGS (13)
  1. AVELUMAB [Suspect]
     Active Substance: AVELUMAB
     Indication: BLADDER TRANSITIONAL CELL CARCINOMA
     Dosage: 1147 MG(10MGLKG), COMBO D, GIVEN ON CYCLE 1 DAY 1 ONLY
     Route: 042
     Dates: start: 20180615, end: 20180615
  2. PF-05082566 [Suspect]
     Active Substance: UTOMILUMAB
     Indication: BLADDER TRANSITIONAL CELL CARCINOMA
     Dosage: 50 MG, COMBO D, GIVEN ON CYCLE 1 DAY 1 ONLY
     Route: 042
     Dates: start: 20180615, end: 20180615
  3. CHOLECALCIFEROL [Concomitant]
     Active Substance: CHOLECALCIFEROL
     Indication: ROUTINE HEALTH MAINTENANCE
  4. MELATONIN [Concomitant]
     Active Substance: MELATONIN
     Indication: INSOMNIA
  5. SPIRONOLACTONE. [Concomitant]
     Active Substance: SPIRONOLACTONE
     Indication: FLUID RETENTION
  6. FLUTICASONE. [Concomitant]
     Active Substance: FLUTICASONE
     Indication: SEASONAL ALLERGY
  7. SENNOSIDES. [Concomitant]
     Active Substance: SENNOSIDES
     Indication: CONSTIPATION
  8. ALKA-SELTZER ANTACID [Concomitant]
     Indication: DYSPEPSIA
  9. SIMETHICONE (DIMETHICONE) [Concomitant]
     Active Substance: DIMETHICONE
     Indication: FLATULENCE
  10. ASPIRIN. [Concomitant]
     Active Substance: ASPIRIN
     Indication: CARDIOVASCULAR EVENT PROPHYLAXIS
     Dosage: UNK
  11. KEYTRUDA [Suspect]
     Active Substance: PEMBROLIZUMAB
     Indication: BLADDER TRANSITIONAL CELL CARCINOMA
     Dosage: 200 MG, GIVEN X1 WITH INITIAL FREQUENCY OF EVERY 3 WEEKS
     Route: 042
     Dates: start: 20180703, end: 20180703
  12. PF-04518600 [Suspect]
     Active Substance: INVESTIGATIONAL PRODUCT
     Indication: BLADDER TRANSITIONAL CELL CARCINOMA
     Dosage: 114.7 MG(1 MGLKG), COMBO D, GIVEN ON CYCLE 1 DAY 1 ONLY
     Route: 042
     Dates: start: 20180615, end: 20180615
  13. LASIX [Concomitant]
     Active Substance: FUROSEMIDE
     Indication: FLUID RETENTION

REACTIONS (2)
  - Hepatic enzyme increased [Recovering/Resolving]
  - Hepatic cirrhosis [Unknown]

NARRATIVE: CASE EVENT DATE: 20180808
